FAERS Safety Report 14946191 (Version 1)
Quarter: 2018Q2

REPORT INFORMATION
  Report Type: Report from Study
  Country: FR (occurrence: FR)
  Receive Date: 20180529
  Receipt Date: 20180529
  Transmission Date: 20180711
  Serious: Yes (Hospitalization, Other)
  Sender: FDA-Public Use
  Company Number: FR-JAZZ-JPI-P-007643

PATIENT

DRUGS (11)
  1. XYREM [Suspect]
     Active Substance: SODIUM OXYBATE
     Dosage: 4.5 G, FIRST DOSE
     Route: 048
     Dates: start: 20091201, end: 20091207
  2. XYREM [Suspect]
     Active Substance: SODIUM OXYBATE
     Dosage: 2.5 G, SECOND DOSE
     Route: 048
     Dates: start: 20091124, end: 20091130
  3. XYREM [Suspect]
     Active Substance: SODIUM OXYBATE
     Indication: DYSSOMNIA
     Dosage: 3.75 G, BID
     Route: 048
     Dates: start: 20090201, end: 20090210
  4. XYREM [Suspect]
     Active Substance: SODIUM OXYBATE
     Dosage: 4.5 G, QD
     Route: 048
     Dates: start: 20090225, end: 20091123
  5. XYREM [Suspect]
     Active Substance: SODIUM OXYBATE
     Indication: NARCOLEPSY
     Dosage: 2.5 G, BID
     Route: 048
     Dates: start: 20090122, end: 20090103
  6. XYREM [Suspect]
     Active Substance: SODIUM OXYBATE
     Indication: SLEEP DISORDER
     Dosage: 4.5 G, QD
     Route: 048
     Dates: start: 20090211, end: 20090218
  7. XYREM [Suspect]
     Active Substance: SODIUM OXYBATE
     Dosage: 4.5 G, FIRST DOSE
     Route: 048
     Dates: start: 20091124, end: 20091130
  8. MODAFINIL. [Concomitant]
     Active Substance: MODAFINIL
     Indication: DYSSOMNIA
  9. CLONAZEPAM. [Concomitant]
     Active Substance: CLONAZEPAM
     Indication: DYSSOMNIA
  10. XYREM [Suspect]
     Active Substance: SODIUM OXYBATE
     Dosage: 3.75 G, SECOND DOSE
     Route: 048
     Dates: start: 20091201, end: 20091207
  11. XYREM [Suspect]
     Active Substance: SODIUM OXYBATE
     Dosage: 4.5 G, BID
     Route: 048
     Dates: start: 20091208

REACTIONS (26)
  - Nephrolithiasis [Unknown]
  - Palpitations [Unknown]
  - Stress [Unknown]
  - Nightmare [Unknown]
  - Syncope [Unknown]
  - Constipation [Unknown]
  - Asthenia [Unknown]
  - Muscular weakness [Unknown]
  - Tremor [Unknown]
  - Snoring [Unknown]
  - Dyspnoea [Unknown]
  - Anxiety [Unknown]
  - Speech disorder [Unknown]
  - Anaemia [Unknown]
  - Arthralgia [Unknown]
  - Adverse event [Unknown]
  - Myalgia [Unknown]
  - Fatigue [Unknown]
  - Hypertension [Unknown]
  - Dizziness [Unknown]
  - Confusional state [Unknown]
  - Dysaesthesia [Unknown]
  - Abdominal pain [Unknown]
  - Somnolence [Unknown]
  - Gastrointestinal disorder [Unknown]
  - Vertigo [Unknown]

NARRATIVE: CASE EVENT DATE: 2009
